FAERS Safety Report 8571248-X (Version None)
Quarter: 2012Q3

REPORT INFORMATION
  Report Type: 
  Country: None (occurrence: None)
  Receive Date: 20120806
  Receipt Date: 20120723
  Transmission Date: 20120928
  Serious: Yes (Disabling, Other)
  Sender: FDA-Public Use
  Company Number: US-ELI_LILLY_AND_COMPANY-US201207007674

PATIENT
  Sex: Female

DRUGS (2)
  1. HUMULIN 70/30 [Suspect]
     Indication: TYPE 2 DIABETES MELLITUS
     Dosage: 45 U, EACH MORNING
  2. HUMULIN 70/30 [Suspect]
     Dosage: 12 U, EACH EVENING

REACTIONS (2)
  - DYSPNOEA [None]
  - CARDIAC DISORDER [None]
